FAERS Safety Report 12231036 (Version 1)
Quarter: 2016Q2

REPORT INFORMATION
  Report Type: Spontaneous
  Country: US (occurrence: US)
  Receive Date: 20160401
  Receipt Date: 20160401
  Transmission Date: 20160815
  Serious: Yes (Other)
  Sender: FDA-Public Use
  Company Number: US-MDT-ADR-2016-00604

PATIENT
  Sex: Female

DRUGS (1)
  1. BACLOFEN, UNKNOWN [Suspect]
     Active Substance: BACLOFEN
     Indication: MUSCLE SPASTICITY
     Route: 037

REACTIONS (1)
  - No therapeutic response [Unknown]
